FAERS Safety Report 6735919-X (Version None)
Quarter: 2010Q2

REPORT INFORMATION
  Report Type: 
  Country: None (occurrence: None)
  Receive Date: 20100521
  Receipt Date: 20100514
  Transmission Date: 20101027
  Serious: Yes (Death, Life-Threatening)
  Sender: FDA-Public Use
  Company Number: B0606323A

PATIENT
  Sex: Female

DRUGS (5)
  1. SERETIDE [Suspect]
     Indication: ASTHMA
     Dosage: 250MCG TWICE PER DAY
     Route: 055
     Dates: start: 20080714
  2. SEVEN E-P [Concomitant]
     Dosage: 2IU PER DAY
     Route: 048
  3. DOGMATYL [Concomitant]
     Dosage: 150MG PER DAY
     Route: 048
     Dates: start: 20081220
  4. CLEANAL [Concomitant]
     Dosage: 1200MG PER DAY
     Route: 048
     Dates: start: 20081215
  5. PAXIL [Concomitant]
     Dosage: 30MG PER DAY
     Route: 048
     Dates: start: 20090130

REACTIONS (3)
  - BACK PAIN [None]
  - GENERAL PHYSICAL HEALTH DETERIORATION [None]
  - UTERINE CANCER [None]
